FAERS Safety Report 5217822-X (Version None)
Quarter: 2007Q1

REPORT INFORMATION
  Report Type: 
  Country: None (occurrence: None)
  Receive Date: 20070124
  Receipt Date: 20061227
  Transmission Date: 20070707
  Serious: Yes (Hospitalization)
  Sender: FDA-Public Use
  Company Number: JP-BOEHRINGER INGELHEIM PHARMACEUTICALS, INC.-2006-BP-08753NB

PATIENT
  Sex: Male
  Weight: 72.2 kg

DRUGS (6)
  1. MICARDIS [Suspect]
     Indication: ESSENTIAL HYPERTENSION
     Route: 048
     Dates: start: 20031031, end: 20041218
  2. ADVAFERON [Suspect]
     Indication: HEPATITIS C
     Route: 058
     Dates: start: 20020122, end: 20020712
  3. FLUITRAN [Concomitant]
     Indication: ESSENTIAL HYPERTENSION
     Route: 048
     Dates: start: 20031106
  4. NORVASC [Concomitant]
     Indication: ESSENTIAL HYPERTENSION
     Route: 048
     Dates: start: 20040126
  5. ASPIRIN [Concomitant]
     Indication: PROPHYLAXIS
     Route: 048
     Dates: start: 20040210
  6. ALLOPURINOL TAB [Concomitant]
     Indication: HYPERURICAEMIA
     Route: 048
     Dates: start: 20040210

REACTIONS (1)
  - CEREBRAL INFARCTION [None]
